FAERS Safety Report 7104937-4 (Version None)
Quarter: 2010Q4

REPORT INFORMATION
  Report Type: 
  Country: None (occurrence: None)
  Receive Date: 20101109
  Receipt Date: 20101027
  Transmission Date: 20110411
  Serious: Yes (Life-Threatening)
  Sender: FDA-Public Use
  Company Number: GB-DEXPHARM-20101703

PATIENT
  Age: 88 Year
  Sex: Male

DRUGS (6)
  1. OMEPRAZOLE [Suspect]
     Dosage: 40 MG MILLIGRAM(S) 1 IN 1 DAY
     Dates: start: 20100615
  2. METFORMIN [Concomitant]
     Dosage: 850 MG MILLIGRAM(S) 3 IN 1 DAY ORAL
     Route: 048
     Dates: start: 19980101, end: 20100910
  3. DOXAZOSIN [Concomitant]
  4. DRIED FERROUS SULPHATE [Concomitant]
  5. GLICLAZIDE [Concomitant]
  6. PIOGLITAZONE [Concomitant]

REACTIONS (3)
  - DRUG INTERACTION [None]
  - HYPERKALAEMIA [None]
  - RENAL TUBULAR ACIDOSIS [None]
